FAERS Safety Report 9252399 (Version 2)
Quarter: 2013Q2

REPORT INFORMATION
  Report Type: Spontaneous
  Country: IE (occurrence: IE)
  Receive Date: 20130424
  Receipt Date: 20130528
  Transmission Date: 20140414
  Serious: Yes (Death)
  Sender: FDA-Public Use
  Company Number: PHFR2013IE002349

PATIENT
  Age: 44 Year
  Sex: Female

DRUGS (5)
  1. CLOZARIL [Suspect]
     Indication: SCHIZOPHRENIA
     Dosage: 600 MG, (200 MG MANE , 400 MG NOCTE)
     Route: 048
     Dates: start: 20110617
  2. LITHIUM [Concomitant]
     Indication: SCHIZOPHRENIA
     Dosage: 800 MG, QHS
     Route: 048
  3. ZOLPIDEM [Concomitant]
     Indication: SCHIZOPHRENIA
     Dosage: 20 MG, QHS
     Route: 048
  4. SERTRALINE [Concomitant]
     Indication: SCHIZOPHRENIA
     Dosage: 200 MG, (MANE)
     Route: 048
  5. CLONAZEPAM [Concomitant]
     Indication: SCHIZOPHRENIA
     Dosage: 1 MG, QHS
     Route: 048

REACTIONS (1)
  - Death [Fatal]
